FAERS Safety Report 8099628-X (Version None)
Quarter: 2012Q1

REPORT INFORMATION
  Report Type: 
  Country: None (occurrence: None)
  Receive Date: 20120131
  Receipt Date: 20120120
  Transmission Date: 20120608
  Serious: Yes (Other)
  Sender: FDA-Public Use
  Company Number: ES-JNJFOC-20110604275

PATIENT
  Age: 35 Year
  Sex: Male
  Weight: 95 kg

DRUGS (2)
  1. AZATHIOPRINE [Suspect]
     Indication: COLITIS ULCERATIVE
     Route: 048
  2. REMICADE [Suspect]
     Indication: COLITIS ULCERATIVE
     Dosage: 400 MG
     Route: 042

REACTIONS (1)
  - HERPES ZOSTER [None]
